FAERS Safety Report 25022795 (Version 1)
Quarter: 2025Q1

REPORT INFORMATION
  Report Type: Spontaneous
  Country: US (occurrence: US)
  Receive Date: 20250228
  Receipt Date: 20250228
  Transmission Date: 20250408
  Serious: No
  Sender: MYLAN
  Company Number: US-MYLANLABS-2025M1012887

PATIENT
  Sex: Female

DRUGS (2)
  1. ESTRADIOL [Suspect]
     Active Substance: ESTRADIOL
     Indication: Urinary tract disorder
     Dosage: 0.01 MILLIGRAM, 3XW (THREE TIMES A WEEK)
  2. ESTRADIOL [Suspect]
     Active Substance: ESTRADIOL
     Indication: Hormone replacement therapy

REACTIONS (3)
  - Product use issue [Unknown]
  - Wrong device used [Unknown]
  - Product design issue [Unknown]
